FAERS Safety Report 9805331 (Version 1)
Quarter: 2014Q1

REPORT INFORMATION
  Report Type: Spontaneous
  Country: FR (occurrence: None)
  Receive Date: 20140106
  Receipt Date: 20140106
  Transmission Date: 20141002
  Serious: Yes (Death, Hospitalization)
  Sender: FDA-Public Use
  Company Number: 2013-5807

PATIENT
  Age: 64 Year
  Sex: Male

DRUGS (1)
  1. BOTULINUM TOXIN TYPE A NOS [Suspect]
     Indication: OESOPHAGEAL SPASM

REACTIONS (5)
  - Mycotic aneurysm [None]
  - Shock haemorrhagic [None]
  - Mediastinitis [None]
  - Mediastinal abscess [None]
  - Aortic aneurysm rupture [None]
